FAERS Safety Report 7747789-1 (Version None)
Quarter: 2011Q3

REPORT INFORMATION
  Report Type: 
  Country: None (occurrence: None)
  Receive Date: 20110913
  Receipt Date: 20110906
  Transmission Date: 20111222
  Serious: Yes (Hospitalization, Other)
  Sender: FDA-Public Use
  Company Number: US-ROCHE-774813

PATIENT
  Sex: Male
  Weight: 65.8 kg

DRUGS (1)
  1. ACCUTANE [Suspect]
     Route: 048
     Dates: start: 20020801, end: 20030201

REACTIONS (4)
  - CROHN'S DISEASE [None]
  - EMOTIONAL DISTRESS [None]
  - ABSCESS INTESTINAL [None]
  - INFLAMMATORY BOWEL DISEASE [None]
